FAERS Safety Report 8434317-0 (Version None)
Quarter: 2012Q2

REPORT INFORMATION
  Report Type: 
  Country: None (occurrence: None)
  Receive Date: 20120613
  Receipt Date: 20120605
  Transmission Date: 20120825
  Serious: Yes (Hospitalization)
  Sender: FDA-Public Use
  Company Number: GXBR2010US01068

PATIENT
  Sex: Male
  Weight: 81.633 kg

DRUGS (7)
  1. AMOXICILLIN [Suspect]
     Indication: PROPHYLAXIS
     Dosage: 500 MG, ONCE4SDO
     Route: 048
     Dates: start: 20060101, end: 20060101
  2. VERAPAMIL [Concomitant]
     Indication: CARDIAC MURMUR
     Dosage: 240 MG, QD
     Route: 048
  3. AMOXICILLIN [Suspect]
     Dosage: 500 MG, UNK
     Route: 048
     Dates: start: 20080625, end: 20080625
  4. LOVASTATIN [Concomitant]
     Indication: BLOOD CHOLESTEROL INCREASED
     Dosage: 40 MG, QD2SDO
     Route: 048
  5. AMOXICILLIN [Suspect]
     Dosage: 500 MG, QD2SDO
     Route: 048
     Dates: start: 20100422, end: 20100422
  6. TOPROL-XL [Concomitant]
     Indication: CARDIAC MURMUR
     Dosage: UNK MG, QD
     Route: 048
  7. AMOXICILLIN [Suspect]
     Dosage: 500 MG, UNK
     Route: 048
     Dates: start: 20070816, end: 20070816

REACTIONS (9)
  - HYPERSENSITIVITY [None]
  - HYPERHIDROSIS [None]
  - DIARRHOEA [None]
  - DEPRESSION [None]
  - BLOOD PRESSURE DECREASED [None]
  - EMOTIONAL DISTRESS [None]
  - ACUTE MYOCARDIAL INFARCTION [None]
  - DIZZINESS [None]
  - CHEST PAIN [None]
